FAERS Safety Report 6317933-1 (Version None)
Quarter: 2009Q3

REPORT INFORMATION
  Report Type: 
  Country: None (occurrence: None)
  Receive Date: 20090821
  Receipt Date: 20090818
  Transmission Date: 20100115
  Serious: Yes (Death, Hospitalization)
  Sender: FDA-Public Use
  Company Number: BR-B.I. PHARMACEUTICALS,INC./RIDGEFIELD-2009-BR-00831BR

PATIENT
  Age: 88 Year
  Sex: Male

DRUGS (1)
  1. SECOTEX [Suspect]
     Indication: BENIGN PROSTATIC HYPERPLASIA
     Route: 048
     Dates: start: 20050101, end: 20090423

REACTIONS (2)
  - GALLBLADDER DISORDER [None]
  - PNEUMONIA [None]
